FAERS Safety Report 4821830-8 (Version None)
Quarter: 2005Q4

REPORT INFORMATION
  Report Type: 
  Country: None (occurrence: None)
  Receive Date: 20051103
  Receipt Date: 20051021
  Transmission Date: 20060501
  Serious: Yes (Hospitalization)
  Sender: FDA-Public Use
  Company Number: 200510103BSV

PATIENT
  Age: 69 Year
  Sex: Male

DRUGS (10)
  1. GAMIMUNE N 10% [Suspect]
     Indication: VASCULITIS
     Dosage: 100 G, TOTAL DAILY, INTRAVENOUS
     Route: 042
     Dates: start: 20030101
  2. MIXTARD HUMAN 70/30 [Concomitant]
  3. COZAAR [Concomitant]
  4. FOSAMAX [Concomitant]
  5. NORVASC [Concomitant]
  6. BEHEPAN [Concomitant]
  7. ALVEDON [Concomitant]
  8. TENORMIN [Concomitant]
  9. KETOGAN NOVUM [Concomitant]
  10. FUROSEMIDE [Concomitant]

REACTIONS (4)
  - COMPUTERISED TOMOGRAM THORAX ABNORMAL [None]
  - JOINT SWELLING [None]
  - PULMONARY EMBOLISM [None]
  - PULMONARY INFARCTION [None]
